FAERS Safety Report 25660039 (Version 2)
Quarter: 2025Q3

REPORT INFORMATION
  Report Type: Spontaneous
  Country: JP (occurrence: JP)
  Receive Date: 20250808
  Receipt Date: 20250925
  Transmission Date: 20251021
  Serious: Yes (Hospitalization)
  Sender: MYLAN
  Company Number: JP-MYLANLABS-2025M1067117

PATIENT
  Age: 53 Year
  Sex: Female

DRUGS (72)
  1. TACROLIMUS [Suspect]
     Active Substance: TACROLIMUS
     Indication: Dermatomyositis
  2. TACROLIMUS [Suspect]
     Active Substance: TACROLIMUS
     Indication: Interstitial lung disease
  3. TACROLIMUS [Suspect]
     Active Substance: TACROLIMUS
     Route: 065
  4. TACROLIMUS [Suspect]
     Active Substance: TACROLIMUS
     Route: 065
  5. TACROLIMUS [Suspect]
     Active Substance: TACROLIMUS
     Dosage: 5 MILLIGRAM, QD
  6. TACROLIMUS [Suspect]
     Active Substance: TACROLIMUS
     Dosage: 5 MILLIGRAM, QD
  7. TACROLIMUS [Suspect]
     Active Substance: TACROLIMUS
     Dosage: 5 MILLIGRAM, QD
     Route: 065
  8. TACROLIMUS [Suspect]
     Active Substance: TACROLIMUS
     Dosage: 5 MILLIGRAM, QD
     Route: 065
  9. PREDNISOLONE [Suspect]
     Active Substance: PREDNISOLONE
     Indication: Dermatomyositis
     Route: 048
  10. PREDNISOLONE [Suspect]
     Active Substance: PREDNISOLONE
     Indication: Interstitial lung disease
  11. PREDNISOLONE [Suspect]
     Active Substance: PREDNISOLONE
  12. PREDNISOLONE [Suspect]
     Active Substance: PREDNISOLONE
     Route: 048
  13. PREDNISOLONE [Suspect]
     Active Substance: PREDNISOLONE
  14. PREDNISOLONE [Suspect]
     Active Substance: PREDNISOLONE
  15. PREDNISOLONE [Suspect]
     Active Substance: PREDNISOLONE
     Route: 048
  16. PREDNISOLONE [Suspect]
     Active Substance: PREDNISOLONE
     Route: 048
  17. PREDNISOLONE [Suspect]
     Active Substance: PREDNISOLONE
  18. PREDNISOLONE [Suspect]
     Active Substance: PREDNISOLONE
  19. PREDNISOLONE [Suspect]
     Active Substance: PREDNISOLONE
     Route: 048
  20. PREDNISOLONE [Suspect]
     Active Substance: PREDNISOLONE
     Route: 048
  21. PREDNISOLONE [Suspect]
     Active Substance: PREDNISOLONE
  22. PREDNISOLONE [Suspect]
     Active Substance: PREDNISOLONE
  23. PREDNISOLONE [Suspect]
     Active Substance: PREDNISOLONE
     Route: 048
  24. PREDNISOLONE [Suspect]
     Active Substance: PREDNISOLONE
     Route: 048
  25. PREDNISOLONE [Suspect]
     Active Substance: PREDNISOLONE
  26. PREDNISOLONE [Suspect]
     Active Substance: PREDNISOLONE
     Route: 048
  27. PREDNISOLONE [Suspect]
     Active Substance: PREDNISOLONE
  28. PREDNISOLONE [Suspect]
     Active Substance: PREDNISOLONE
     Route: 048
  29. PREDNISOLONE [Suspect]
     Active Substance: PREDNISOLONE
     Route: 048
  30. PREDNISOLONE [Suspect]
     Active Substance: PREDNISOLONE
  31. PREDNISOLONE [Suspect]
     Active Substance: PREDNISOLONE
  32. PREDNISOLONE [Suspect]
     Active Substance: PREDNISOLONE
     Route: 048
  33. PREDNISOLONE [Suspect]
     Active Substance: PREDNISOLONE
     Route: 048
  34. PREDNISOLONE [Suspect]
     Active Substance: PREDNISOLONE
  35. PREDNISOLONE [Suspect]
     Active Substance: PREDNISOLONE
  36. PREDNISOLONE [Suspect]
     Active Substance: PREDNISOLONE
     Route: 048
  37. PREDNISOLONE [Suspect]
     Active Substance: PREDNISOLONE
  38. PREDNISOLONE [Suspect]
     Active Substance: PREDNISOLONE
  39. PREDNISOLONE [Suspect]
     Active Substance: PREDNISOLONE
     Route: 048
  40. PREDNISOLONE [Suspect]
     Active Substance: PREDNISOLONE
     Route: 048
  41. PREDNISOLONE [Suspect]
     Active Substance: PREDNISOLONE
     Route: 048
  42. PREDNISOLONE [Suspect]
     Active Substance: PREDNISOLONE
  43. PREDNISOLONE [Suspect]
     Active Substance: PREDNISOLONE
  44. PREDNISOLONE [Suspect]
     Active Substance: PREDNISOLONE
     Route: 048
  45. PREDNISOLONE [Suspect]
     Active Substance: PREDNISOLONE
  46. PREDNISOLONE [Suspect]
     Active Substance: PREDNISOLONE
  47. PREDNISOLONE [Suspect]
     Active Substance: PREDNISOLONE
     Route: 048
  48. PREDNISOLONE [Suspect]
     Active Substance: PREDNISOLONE
     Route: 048
  49. PREDNISOLONE [Suspect]
     Active Substance: PREDNISOLONE
  50. PREDNISOLONE [Suspect]
     Active Substance: PREDNISOLONE
  51. PREDNISOLONE [Suspect]
     Active Substance: PREDNISOLONE
     Route: 048
  52. PREDNISOLONE [Suspect]
     Active Substance: PREDNISOLONE
     Route: 048
  53. PREDNISOLONE [Suspect]
     Active Substance: PREDNISOLONE
  54. PREDNISOLONE [Suspect]
     Active Substance: PREDNISOLONE
     Route: 048
  55. PREDNISOLONE [Suspect]
     Active Substance: PREDNISOLONE
  56. PREDNISOLONE [Suspect]
     Active Substance: PREDNISOLONE
     Route: 048
  57. METHYLPREDNISOLONE [Suspect]
     Active Substance: METHYLPREDNISOLONE
     Indication: Dermatomyositis
  58. METHYLPREDNISOLONE [Suspect]
     Active Substance: METHYLPREDNISOLONE
     Indication: Interstitial lung disease
     Route: 065
  59. METHYLPREDNISOLONE [Suspect]
     Active Substance: METHYLPREDNISOLONE
     Route: 065
  60. METHYLPREDNISOLONE [Suspect]
     Active Substance: METHYLPREDNISOLONE
  61. CYCLOPHOSPHAMIDE [Suspect]
     Active Substance: CYCLOPHOSPHAMIDE
     Indication: Dermatomyositis
     Dosage: 9 COURSES
  62. CYCLOPHOSPHAMIDE [Suspect]
     Active Substance: CYCLOPHOSPHAMIDE
     Indication: Interstitial lung disease
     Dosage: 9 COURSES
     Route: 042
  63. CYCLOPHOSPHAMIDE [Suspect]
     Active Substance: CYCLOPHOSPHAMIDE
     Dosage: 9 COURSES
     Route: 042
  64. CYCLOPHOSPHAMIDE [Suspect]
     Active Substance: CYCLOPHOSPHAMIDE
     Dosage: 9 COURSES
  65. BARICITINIB [Suspect]
     Active Substance: BARICITINIB
     Indication: Dermatomyositis
  66. BARICITINIB [Suspect]
     Active Substance: BARICITINIB
     Indication: Interstitial lung disease
  67. BARICITINIB [Suspect]
     Active Substance: BARICITINIB
     Route: 065
  68. BARICITINIB [Suspect]
     Active Substance: BARICITINIB
     Route: 065
  69. BARICITINIB [Suspect]
     Active Substance: BARICITINIB
     Dosage: 4 MILLIGRAM, QD
  70. BARICITINIB [Suspect]
     Active Substance: BARICITINIB
     Dosage: 4 MILLIGRAM, QD
  71. BARICITINIB [Suspect]
     Active Substance: BARICITINIB
     Dosage: 4 MILLIGRAM, QD
     Route: 065
  72. BARICITINIB [Suspect]
     Active Substance: BARICITINIB
     Dosage: 4 MILLIGRAM, QD
     Route: 065

REACTIONS (4)
  - Nervous system disorder [Recovering/Resolving]
  - Immunodeficiency [Recovering/Resolving]
  - Epstein-Barr virus associated lymphoproliferative disorder [Recovering/Resolving]
  - Epstein-Barr virus infection reactivation [Recovering/Resolving]
